FAERS Safety Report 11421119 (Version 5)
Quarter: 2016Q4

REPORT INFORMATION
  Report Type: Spontaneous
  Country: US (occurrence: US)
  Receive Date: 20150826
  Receipt Date: 20161110
  Transmission Date: 20170206
  Serious: No
  Sender: FDA-Public Use
  Company Number: US-GLAXOSMITHKLINE-US2015121364

PATIENT
  Age: 16 Year
  Sex: Male

DRUGS (2)
  1. VENTOLIN [Suspect]
     Active Substance: ALBUTEROL SULFATE
     Dosage: UNK
  2. VENTOLIN [Suspect]
     Active Substance: ALBUTEROL SULFATE
     Indication: ASTHMA
     Dosage: 1 DF, PRN
     Route: 055
     Dates: start: 2006

REACTIONS (6)
  - Throat irritation [Not Recovered/Not Resolved]
  - Drug ineffective [Not Recovered/Not Resolved]
  - Dyspnoea [Not Recovered/Not Resolved]
  - Dry mouth [Not Recovered/Not Resolved]
  - Product quality issue [Unknown]
  - Drug ineffective [Unknown]

NARRATIVE: CASE EVENT DATE: 201508
